FAERS Safety Report 14772309 (Version 2)
Quarter: 2023Q4

REPORT INFORMATION
  Report Type: Report from Study
  Country: KR (occurrence: KR)
  Receive Date: 20180418
  Receipt Date: 20231031
  Transmission Date: 20240110
  Serious: Yes (Hospitalization, Other)
  Sender: FDA-Public Use
  Company Number: KR-KYOWAKIRIN-2018WRD-GLS000263

PATIENT
  Age: 37 Year
  Sex: Female

DRUGS (5)
  1. PEGFILGRASTIM [Suspect]
     Active Substance: PEGFILGRASTIM
     Indication: Breast cancer
     Dosage: 6 MG, UNK
     Route: 058
     Dates: start: 20180317, end: 20180317
  2. CYCLOPHOSPHAMIDE [Concomitant]
     Active Substance: CYCLOPHOSPHAMIDE
     Indication: Breast cancer
     Dosage: 948 MG, UNK
     Route: 065
     Dates: start: 20180223, end: 20180223
  3. CYCLOPHOSPHAMIDE [Concomitant]
     Active Substance: CYCLOPHOSPHAMIDE
     Dosage: 942 MG, UNK
     Route: 065
     Dates: start: 20180316, end: 20180316
  4. DOCETAXEL [Concomitant]
     Active Substance: DOCETAXEL
     Indication: Breast cancer
     Dosage: 94 MG, UNK
     Route: 065
     Dates: start: 20180223, end: 20180223
  5. DOCETAXEL [Concomitant]
     Active Substance: DOCETAXEL
     Dosage: 94 MG, UNK
     Route: 065
     Dates: start: 20180316, end: 20180316

REACTIONS (1)
  - Febrile neutropenia [Recovered/Resolved]

NARRATIVE: CASE EVENT DATE: 20180323
